FAERS Safety Report 16628246 (Version 3)
Quarter: 2019Q3

REPORT INFORMATION
  Report Type: Spontaneous
  Country: JP (occurrence: JP)
  Receive Date: 20190724
  Receipt Date: 20190907
  Transmission Date: 20191004
  Serious: Yes (Hospitalization, Other)
  Sender: FDA-Public Use
  Company Number: JP-AMGEN-JPNSP2019118357

PATIENT
  Age: 77 Year
  Sex: Female
  Weight: 45.15 kg

DRUGS (12)
  1. KYPROLIS [Suspect]
     Active Substance: CARFILZOMIB
     Dosage: 79 MILLIGRAM
     Route: 041
     Dates: start: 20190715, end: 20190715
  2. FEBURIC [Concomitant]
     Active Substance: FEBUXOSTAT
     Indication: PROPHYLAXIS
     Dosage: 60 MILLIGRAM, QD (EVERYDAY)
     Route: 048
     Dates: start: 20190630
  3. BACTRAMIN [Concomitant]
     Active Substance: SULFAMETHOXAZOLE\TRIMETHOPRIM
     Indication: PROPHYLAXIS
     Dosage: 2 DOSAGE FORM, 2 TIMES/WK (Q84H)
     Route: 048
     Dates: start: 20180606
  4. METHYCOBAL [Concomitant]
     Active Substance: METHYLCOBALAMIN
     Dosage: 500 MILLIGRAM, Q8H
     Route: 048
     Dates: start: 20190116
  5. VALACICLOVIR [Concomitant]
     Active Substance: VALACYCLOVIR HYDROCHLORIDE
     Indication: PROPHYLAXIS
     Dosage: 500 MILLIGRAM, QD (EVERYDAY)
     Route: 048
     Dates: start: 20180606
  6. KYPROLIS [Suspect]
     Active Substance: CARFILZOMIB
     Indication: PLASMA CELL MYELOMA
     Dosage: 28 MILLIGRAM, QD (EVERYDAY)
     Route: 041
     Dates: start: 20190701, end: 20190702
  7. LYRICA [Concomitant]
     Active Substance: PREGABALIN
     Dosage: 75 MILLIGRAM, Q12H
     Route: 048
     Dates: start: 20190116
  8. LANSOPRAZOLE. [Concomitant]
     Active Substance: LANSOPRAZOLE
     Indication: PROPHYLAXIS
     Dosage: 15 MILLIGRAM, QD (EVERYDAY)
     Route: 048
     Dates: start: 20180606
  9. LENADEX [Suspect]
     Active Substance: DEXAMETHASONE ACETATE
     Indication: PLASMA CELL MYELOMA
     Dosage: 20 MILLIGRAM
     Route: 048
     Dates: start: 20190715, end: 20190715
  10. EDIROL [Concomitant]
     Active Substance: ELDECALCITOL
     Indication: PROPHYLAXIS
     Dosage: 0.75 MILLIGRAM, QD (EVERYDAY)
     Route: 048
  11. BILANOA [Concomitant]
     Active Substance: BILASTINE
     Dosage: 20 MILLIGRAM, QD (EVERYDAY)
     Route: 048
     Dates: start: 20180617
  12. FUROSEMIDE. [Concomitant]
     Active Substance: FUROSEMIDE
     Dosage: 20 MILLIGRAM, QD (EVERYDAY)
     Route: 048
     Dates: start: 20190116

REACTIONS (4)
  - Blood lactate dehydrogenase increased [Recovered/Resolved]
  - White blood cell count increased [Recovered/Resolved]
  - Prinzmetal angina [Recovered/Resolved]
  - Tumour lysis syndrome [Recovered/Resolved]

NARRATIVE: CASE EVENT DATE: 20190715
